FAERS Safety Report 23940260 (Version 1)
Quarter: 2024Q2

REPORT INFORMATION
  Report Type: Spontaneous
  Country: US (occurrence: US)
  Receive Date: 20240605
  Receipt Date: 20240605
  Transmission Date: 20240716
  Serious: Yes (Hospitalization, Other)
  Sender: FDA-Public Use
  Company Number: US-BRISTOL-MYERS SQUIBB COMPANY-2024-089650

PATIENT
  Age: 80 Year
  Sex: Male

DRUGS (1)
  1. LENALIDOMIDE [Suspect]
     Active Substance: LENALIDOMIDE
     Indication: Metastases to bone
     Dosage: TAKE 1 CAPSULE BY MOUTH ONCE EVERY DAY
     Route: 048

REACTIONS (3)
  - Full blood count decreased [Recovered/Resolved]
  - Thrombosis [Recovered/Resolved]
  - Off label use [Unknown]
